FAERS Safety Report 8292022-8 (Version None)
Quarter: 2012Q2

REPORT INFORMATION
  Report Type: 
  Country: None (occurrence: None)
  Receive Date: 20120417
  Receipt Date: 20120406
  Transmission Date: 20120825
  Serious: Yes (Other)
  Sender: FDA-Public Use
  Company Number: JP-VERTEX PHARMACEUTICALS INC.-AE-2012-001923

PATIENT
  Age: 34 Year
  Sex: Female

DRUGS (7)
  1. RIBAVIRIN [Concomitant]
     Route: 048
     Dates: start: 20120215
  2. ALLEGRA [Concomitant]
     Route: 048
     Dates: start: 20120229
  3. RIBAVIRIN [Concomitant]
     Indication: HEPATITIS C
     Route: 048
     Dates: start: 20111209, end: 20120214
  4. TELAVIC (TELAPREVIR) [Suspect]
     Indication: HEPATITIS C
     Route: 048
     Dates: start: 20111209, end: 20120118
  5. PEGINTERFERON ALFA-2B [Concomitant]
     Indication: HEPATITIS C
     Route: 051
     Dates: start: 20111209
  6. LASIX [Concomitant]
     Route: 048
     Dates: start: 20120229
  7. TELAVIC (TELAPREVIR) [Suspect]
     Route: 048
     Dates: start: 20120118, end: 20120228

REACTIONS (6)
  - PLATELET COUNT DECREASED [None]
  - HAEMOGLOBIN DECREASED [None]
  - WHITE BLOOD CELL COUNT DECREASED [None]
  - NEUTROPHIL COUNT DECREASED [None]
  - BLOOD URIC ACID INCREASED [None]
  - VOMITING [None]
